FAERS Safety Report 7031943-0 (Version None)
Quarter: 2010Q4

REPORT INFORMATION
  Report Type: 
  Country: None (occurrence: None)
  Receive Date: 20101007
  Receipt Date: 20100929
  Transmission Date: 20110411
  Serious: Yes (Hospitalization, Other)
  Sender: FDA-Public Use
  Company Number: US-ELI_LILLY_AND_COMPANY-US201002002097

PATIENT
  Sex: Female
  Weight: 95.238 kg

DRUGS (4)
  1. BYETTA [Suspect]
     Dosage: UNK, UNKNOWN
     Route: 065
     Dates: start: 20050901, end: 20060422
  2. METFORMIN [Concomitant]
     Indication: DIABETES MELLITUS
     Dosage: UNK, UNK
     Dates: start: 20040101, end: 20080501
  3. LIPITOR [Concomitant]
     Indication: BLOOD CHOLESTEROL INCREASED
     Dates: start: 20041101, end: 20071231
  4. WELLBUTRIN [Concomitant]
     Indication: ANXIETY
     Dates: start: 20040101, end: 20080501

REACTIONS (1)
  - PANCREATITIS [None]
